FAERS Safety Report 8509982-X (Version None)
Quarter: 2012Q3

REPORT INFORMATION
  Report Type: 
  Country: None (occurrence: None)
  Receive Date: 20120713
  Receipt Date: 20120704
  Transmission Date: 20120928
  Serious: Yes (Hospitalization)
  Sender: FDA-Public Use
  Company Number: FR-ASTRAZENECA-2012SE46104

PATIENT
  Sex: Male

DRUGS (22)
  1. DESLORATADINE [Concomitant]
  2. PHENYLEPHRINE HCL [Suspect]
     Indication: CATARACT OPERATION
     Route: 047
     Dates: start: 20120607, end: 20120607
  3. SPIRIVA [Concomitant]
  4. DIGOXIN [Concomitant]
  5. LEVOTHYROXINE SODIUM [Concomitant]
  6. FUROSEMIDE [Concomitant]
  7. DICLOFENAC [Suspect]
     Indication: CATARACT OPERATION
     Route: 047
     Dates: start: 20120607, end: 20120607
  8. ALLOPURINOL [Concomitant]
  9. CARBOCAINE [Suspect]
     Indication: CATARACT OPERATION
     Dosage: 0.4 GRAMS/ 20 ML
     Route: 021
     Dates: start: 20120607, end: 20120607
  10. HUMERA [Concomitant]
     Dates: start: 20080301
  11. SYMBICORT [Concomitant]
  12. RAMIPRIL [Concomitant]
  13. LEVOFLOXACIN [Suspect]
     Indication: CATARACT OPERATION
     Route: 048
     Dates: start: 20120606, end: 20120607
  14. DEXAMETHASONE [Suspect]
     Indication: CATARACT OPERATION
     Route: 047
     Dates: start: 20120607, end: 20120607
  15. AMLODIPINE BESYLATE [Concomitant]
  16. BETADINE [Suspect]
     Indication: CATARACT OPERATION
     Route: 047
     Dates: start: 20120607, end: 20120607
  17. DIAMOX [Suspect]
     Indication: CATARACT OPERATION
     Route: 042
     Dates: start: 20120607, end: 20120607
  18. BRICANYL [Concomitant]
  19. FENOFIBRATE [Concomitant]
  20. TROPICAMIDE [Suspect]
     Indication: CATARACT OPERATION
     Route: 047
     Dates: start: 20120607, end: 20120607
  21. ASPIRIN [Concomitant]
  22. AMIODARONE HCL [Concomitant]

REACTIONS (3)
  - RASH MACULO-PAPULAR [None]
  - DERMATITIS EXFOLIATIVE [None]
  - RENAL FAILURE ACUTE [None]
